FAERS Safety Report 4521293-6 (Version None)
Quarter: 2004Q4

REPORT INFORMATION
  Report Type: 
  Country: None (occurrence: None)
  Receive Date: 20041203
  Receipt Date: 20041130
  Transmission Date: 20050328
  Serious: Yes (Hospitalization)
  Sender: FDA-Public Use
  Company Number: 2004-11-1669

PATIENT
  Age: 34 Year
  Sex: Female

DRUGS (3)
  1. VIRAFERON (INTERFERON ALFA-2B) INJECTABLE SOLUTION [Suspect]
     Indication: HEPATITIS C
     Dosage: SUBCUTANEOUS
     Route: 058
     Dates: start: 20030701, end: 20040730
  2. REBETOL [Suspect]
     Indication: HEPATITIS C
     Dosage: 1000 MG QD ORAL
     Route: 048
     Dates: start: 20030701, end: 20040730
  3. MANTADIX [Concomitant]

REACTIONS (5)
  - HYPERCALCAEMIA [None]
  - RENAL FAILURE [None]
  - SARCOIDOSIS [None]
  - SIALOADENITIS [None]
  - UVEITIS [None]
